FAERS Safety Report 18553255 (Version 1)
Quarter: 2020Q4

REPORT INFORMATION
  Report Type: Report from Study
  Country: CO (occurrence: CO)
  Receive Date: 20201127
  Receipt Date: 20201127
  Transmission Date: 20210114
  Serious: Yes (Death, Hospitalization, Other)
  Sender: FDA-Public Use
  Company Number: CO-ASTELLAS-2020US014130

PATIENT
  Age: 42 Year
  Sex: Female
  Weight: 53 kg

DRUGS (5)
  1. MYCOPHENOLATE [Concomitant]
     Active Substance: MYCOPHENOLIC ACID
     Indication: RENAL TRANSPLANT
     Route: 048
     Dates: start: 20191213
  2. TACROLIMUS. [Suspect]
     Active Substance: TACROLIMUS
     Route: 048
  3. TACROLIMUS. [Suspect]
     Active Substance: TACROLIMUS
     Indication: RENAL TRANSPLANT
     Dosage: 7 MG, ONCE DAILY (7 CAPSULES OF 1MG)
     Route: 048
     Dates: start: 20191213, end: 20200413
  4. PREDNISOLONE. [Concomitant]
     Active Substance: PREDNISOLONE
     Indication: RENAL TRANSPLANT
     Route: 048
     Dates: start: 20191213
  5. TACROLIMUS. [Suspect]
     Active Substance: TACROLIMUS
     Dosage: 6 MG, ONCE DAILY (6 CAPSULES OF 1MG)
     Route: 048
     Dates: start: 20200414

REACTIONS (7)
  - Bacterial test positive [Recovering/Resolving]
  - Klebsiella test positive [Recovered/Resolved]
  - Secondary immunodeficiency [Fatal]
  - Renal graft infection [Recovering/Resolving]
  - COVID-19 [Fatal]
  - Immunosuppressant drug level increased [Unknown]
  - Bacterial test positive [Unknown]

NARRATIVE: CASE EVENT DATE: 20200310
